FAERS Safety Report 19083144 (Version 3)
Quarter: 2021Q2

REPORT INFORMATION
  Report Type: Spontaneous
  Country: CH (occurrence: CH)
  Receive Date: 20210401
  Receipt Date: 20210512
  Transmission Date: 20210717
  Serious: Yes (Other)
  Sender: FDA-Public Use
  Company Number: CH-ROCHE-2799487

PATIENT
  Age: 59 Year
  Sex: Male
  Weight: 82 kg

DRUGS (18)
  1. METOJECT [Concomitant]
     Active Substance: METHOTREXATE SODIUM
     Dosage: CURRENTLY 20 MG S.C. 1X WEEKLY
     Dates: start: 20200108
  2. ATORVASTATIN [Concomitant]
     Active Substance: ATORVASTATIN
     Route: 048
     Dates: start: 20200924
  3. BENLYSTA [Concomitant]
     Active Substance: BELIMUMAB
     Dates: start: 20200907
  4. CO?AMOXICILLIN [Concomitant]
     Active Substance: AMOXICILLIN\CLAVULANATE POTASSIUM
     Route: 048
     Dates: start: 20200619, end: 20200624
  5. CALCIMAGON?D3 [Concomitant]
     Active Substance: CALCIUM\CHOLECALCIFEROL
     Route: 048
  6. CALCIMAGON?D3 [Concomitant]
     Active Substance: CALCIUM\CHOLECALCIFEROL
     Route: 048
  7. BENLYSTA [Concomitant]
     Active Substance: BELIMUMAB
     Dates: start: 20190925
  8. EFIENT [Concomitant]
     Active Substance: PRASUGREL HYDROCHLORIDE
     Route: 048
  9. MABTHERA [Suspect]
     Active Substance: RITUXIMAB
     Indication: SJOGREN^S SYNDROME
     Route: 065
     Dates: start: 20200423, end: 20200423
  10. PANTOZOL [Concomitant]
     Active Substance: PANTOPRAZOLE SODIUM
     Route: 048
  11. IMUREK [Suspect]
     Active Substance: AZATHIOPRINE
     Indication: PRODUCT USED FOR UNKNOWN INDICATION
     Dosage: IN INCREASING DOSE UNTIL 150 MG DAILY
     Route: 065
     Dates: start: 20200708, end: 20200826
  12. AERIUS [Concomitant]
  13. BENLYSTA [Concomitant]
     Active Substance: BELIMUMAB
  14. SOLU?MEDROL [Concomitant]
     Active Substance: METHYLPREDNISOLONE SODIUM SUCCINATE
     Route: 042
     Dates: start: 20200629
  15. CANDESARTAN. [Concomitant]
     Active Substance: CANDESARTAN
     Route: 048
  16. MABTHERA [Suspect]
     Active Substance: RITUXIMAB
     Indication: URTICARIAL VASCULITIS
     Route: 065
     Dates: start: 20191114, end: 20191128
  17. CEFEPIME [Concomitant]
     Active Substance: CEFEPIME HYDROCHLORIDE
     Route: 042
     Dates: start: 20200624, end: 20200626
  18. ASPIRIN CARDIO [Concomitant]
     Active Substance: ASPIRIN
     Route: 048

REACTIONS (5)
  - Interstitial lung disease [Recovered/Resolved]
  - Pneumonia [Unknown]
  - Acute myocardial infarction [Unknown]
  - Hypertensive heart disease [Unknown]
  - Drug-induced liver injury [Unknown]

NARRATIVE: CASE EVENT DATE: 202001
